FAERS Safety Report 7569003-2 (Version None)
Quarter: 2011Q2

REPORT INFORMATION
  Report Type: 
  Country: None (occurrence: None)
  Receive Date: 20110623
  Receipt Date: 20110620
  Transmission Date: 20111010
  Serious: Yes (Other)
  Sender: FDA-Public Use
  Company Number: US-PFIZER INC-2011089220

PATIENT
  Sex: Male
  Weight: 92.5 kg

DRUGS (6)
  1. LYRICA [Suspect]
     Indication: BACK PAIN
     Dosage: 50 MG, 2X/DAY
     Route: 048
     Dates: start: 20110401, end: 20110401
  2. ACETYLSALICYLIC ACID [Concomitant]
     Dosage: UNK, DAILY
  3. GEMFIBROZIL [Concomitant]
     Indication: BLOOD CHOLESTEROL INCREASED
     Dosage: UNK
  4. LYRICA [Suspect]
     Indication: NEUROPATHY PERIPHERAL
  5. LYRICA [Suspect]
     Indication: INTERVERTEBRAL DISC DISORDER
  6. CALCIUM [Concomitant]
     Dosage: UNK

REACTIONS (11)
  - ABDOMINAL DISCOMFORT [None]
  - CONSTIPATION [None]
  - CONFUSIONAL STATE [None]
  - ASTHENIA [None]
  - PAIN IN EXTREMITY [None]
  - PRURITUS [None]
  - MALAISE [None]
  - VISION BLURRED [None]
  - WEIGHT DECREASED [None]
  - GAIT DISTURBANCE [None]
  - BACK PAIN [None]
